FAERS Safety Report 7884534-3 (Version None)
Quarter: 2011Q4

REPORT INFORMATION
  Report Type: 
  Country: None (occurrence: None)
  Receive Date: 20111102
  Receipt Date: 20111101
  Transmission Date: 20120403
  Serious: Yes (Death, Life-Threatening, Hospitalization)
  Sender: FDA-Public Use
  Company Number: US-BAYER-2011-103772

PATIENT
  Age: 46 Year
  Sex: Male

DRUGS (5)
  1. ATENOLOL [Concomitant]
     Dosage: UNK
     Dates: end: 20110807
  2. ASPIRIN [Suspect]
     Indication: THROMBOSIS PROPHYLAXIS
     Dosage: UNK
     Route: 048
     Dates: end: 20110807
  3. RENAPRIL [Concomitant]
     Dosage: UNK
     Dates: start: 20000101, end: 20110807
  4. DAPAGLIFLOZIN [Suspect]
     Indication: TYPE 2 DIABETES MELLITUS
     Dosage: 10MG DAILY
     Route: 048
     Dates: start: 20101005, end: 20110807
  5. INSULATARD NPH HUMAN [Concomitant]
     Dosage: UNK
     Dates: start: 20090508, end: 20110810

REACTIONS (2)
  - CIRCULATORY COLLAPSE [None]
  - DUODENAL ULCER HAEMORRHAGE [None]
